FAERS Safety Report 16539454 (Version 2)
Quarter: 2019Q3

REPORT INFORMATION
  Report Type: Spontaneous
  Country: DE (occurrence: DE)
  Receive Date: 20190708
  Receipt Date: 20190709
  Transmission Date: 20191004
  Serious: Yes (Life-Threatening, Hospitalization)
  Sender: FDA-Public Use
  Company Number: DE-TEVA-2019-DE-1073534

PATIENT
  Age: 70 Year
  Sex: Female

DRUGS (7)
  1. RAMIPRIL. [Concomitant]
     Active Substance: RAMIPRIL
     Dosage: 5 MG, 1-0-0-1
  2. METOPROLOL. [Suspect]
     Active Substance: METOPROLOL
     Dosage: 95 MG, 1-0-1-0
  3. METFORMIN [Concomitant]
     Active Substance: METFORMIN HYDROCHLORIDE
     Dosage: 1000 MG, 1-0-0-1
  4. ASS 100 [Concomitant]
     Active Substance: ASPIRIN
     Dosage: 100 MG, 0-1-0-0
  5. LANTUS [Concomitant]
     Active Substance: INSULIN GLARGINE
     Dosage: 16 IE, 0-0-0-1
  6. ATORVASTATIN [Concomitant]
     Active Substance: ATORVASTATIN
     Dosage: 20 MG, 0-0-1-0
  7. HUMALOG [Concomitant]
     Active Substance: INSULIN LISPRO
     Dosage: NK IE, ACCORDING TO BZ

REACTIONS (4)
  - Bradycardia [Unknown]
  - Dizziness [Unknown]
  - Presyncope [Unknown]
  - Nausea [Unknown]
